FAERS Safety Report 4484605-8 (Version None)
Quarter: 2004Q3

REPORT INFORMATION
  Report Type: 
  Country: None (occurrence: None)
  Receive Date: 20040921
  Receipt Date: 20031107
  Transmission Date: 20050211
  Serious: Yes (Hospitalization)
  Sender: FDA-Public Use
  Company Number: 163-20785-03110135

PATIENT
  Age: 79 Year
  Sex: Female

DRUGS (7)
  1. THALOMID [Suspect]
     Indication: PERITONEAL CARCINOMA
     Dosage: 200 MG, DAILY, ORAL
     Route: 048
     Dates: start: 20030904, end: 20031103
  2. NEURONTIN [Concomitant]
  3. GLYBURIDE [Concomitant]
  4. COUMADIN [Concomitant]
  5. COLACE (DOCUSATE SODIUM) [Concomitant]
  6. PROTONIX [Concomitant]
  7. FLONASE [Concomitant]

REACTIONS (1)
  - BRADYCARDIA [None]
